FAERS Safety Report 5766935-2 (Version None)
Quarter: 2008Q2

REPORT INFORMATION
  Report Type: 
  Country: None (occurrence: None)
  Receive Date: 20080519
  Receipt Date: 20070822
  Transmission Date: 20081010
  Serious: No
  Sender: FDA-Public Use
  Company Number: 2007BH007316

PATIENT

DRUGS (1)
  1. HEPARIN SODIUM [Suspect]
     Indication: CATHETERISATION CARDIAC
     Dosage: 2000 UNITS; IV
     Route: 042
     Dates: start: 20070815, end: 20070815

REACTIONS (1)
  - HAEMORRHAGE [None]
